FAERS Safety Report 10927213 (Version 1)
Quarter: 2015Q1

REPORT INFORMATION
  Report Type: Spontaneous
  Country: US (occurrence: None)
  Receive Date: 20150316
  Receipt Date: 20150316
  Transmission Date: 20150721
  Serious: Yes (Other)
  Sender: FDA-Public Use
  Company Number: ADR-2015-00497

PATIENT
  Age: 43 Year
  Sex: Female

DRUGS (2)
  1. CAFFEINE. [Concomitant]
     Active Substance: CAFFEINE
  2. BACLOFEN INTRATHECAL [Suspect]
     Active Substance: BACLOFEN
     Indication: MUSCLE SPASTICITY

REACTIONS (10)
  - Incision site pain [None]
  - Seroma [None]
  - Cerebrospinal fluid leakage [None]
  - Incision site swelling [None]
  - Post lumbar puncture syndrome [None]
  - Headache [None]
  - Implant site extravasation [None]
  - Paraesthesia [None]
  - Fluctuance [None]
  - Post procedural swelling [None]
